FAERS Safety Report 9890185 (Version 1)
Quarter: 2014Q1

REPORT INFORMATION
  Report Type: Spontaneous
  Country: US (occurrence: US)
  Receive Date: 20140212
  Receipt Date: 20140212
  Transmission Date: 20141002
  Serious: No
  Sender: FDA-Public Use
  Company Number: US-BIOGENIDEC-2014BI011714

PATIENT
  Age: 48 Year
  Sex: Female

DRUGS (8)
  1. TECFIDERA [Suspect]
     Indication: MULTIPLE SCLEROSIS
     Route: 048
     Dates: start: 20130616, end: 20130622
  2. TECFIDERA [Suspect]
     Indication: MULTIPLE SCLEROSIS
     Route: 048
     Dates: start: 20130623
  3. COLESTIPOL [Concomitant]
  4. ZOLPIDEM [Concomitant]
  5. TRAZODONE [Concomitant]
  6. BACLOFEN [Concomitant]
  7. OXYBUTYNIN [Concomitant]
  8. METOPROLOL [Concomitant]

REACTIONS (2)
  - Paraesthesia [Unknown]
  - Hot flush [Unknown]
